FAERS Safety Report 23350979 (Version 3)
Quarter: 2024Q1

REPORT INFORMATION
  Report Type: Spontaneous
  Country: US (occurrence: US)
  Receive Date: 20231229
  Receipt Date: 20240310
  Transmission Date: 20240410
  Serious: Yes (Other)
  Sender: FDA-Public Use
  Company Number: US-JNJFOC-20231253206

PATIENT
  Sex: Male

DRUGS (3)
  1. ERLEADA [Suspect]
     Active Substance: APALUTAMIDE
     Indication: Prostate cancer
     Route: 048
  2. CALCIUM [CALCIUM CHLORIDE] [Concomitant]
  3. IRON [Concomitant]
     Active Substance: IRON

REACTIONS (7)
  - Femur fracture [Unknown]
  - Skin cancer [Unknown]
  - Fatigue [Unknown]
  - Muscular weakness [Unknown]
  - Asthenia [Unknown]
  - Alopecia [Unknown]
  - Product label issue [Unknown]

NARRATIVE: CASE EVENT DATE: 20230301
